FAERS Safety Report 8537069-9 (Version None)
Quarter: 2012Q3

REPORT INFORMATION
  Report Type: 
  Country: None (occurrence: None)
  Receive Date: 20120725
  Receipt Date: 20120719
  Transmission Date: 20120928
  Serious: Yes (Death)
  Sender: FDA-Public Use
  Company Number: CN-ASTRAZENECA-2012SE51455

PATIENT
  Age: 28447 Day
  Sex: Male
  Weight: 55.8 kg

DRUGS (2)
  1. CASODEX [Suspect]
     Indication: PROSTATE CANCER
     Route: 048
     Dates: start: 20091112
  2. ZOLADEX [Concomitant]
     Indication: PROSTATE CANCER
     Route: 058
     Dates: start: 20090910

REACTIONS (1)
  - DEATH [None]
